FAERS Safety Report 10260029 (Version 1)
Quarter: 2014Q2

REPORT INFORMATION
  Report Type: Report from Study
  Country: TR (occurrence: TR)
  Receive Date: 20140625
  Receipt Date: 20140625
  Transmission Date: 20141212
  Serious: Yes (Other)
  Sender: FDA-Public Use
  Company Number: TR-BAXTER-2014BAX033243

PATIENT
  Sex: 0

DRUGS (1)
  1. FEIBA 500 IU [Suspect]
     Indication: HAEMOPHILIA
     Route: 065

REACTIONS (1)
  - Post procedural haemorrhage [Unknown]
